FAERS Safety Report 5004439-5 (Version None)
Quarter: 2006Q2

REPORT INFORMATION
  Report Type: 
  Country: None (occurrence: None)
  Receive Date: 20060517
  Receipt Date: 20060505
  Transmission Date: 20061013
  Serious: Yes (Other)
  Sender: FDA-Public Use
  Company Number: AU-ROCHE-446957

PATIENT
  Age: 53 Year
  Sex: Female
  Weight: 64.7 kg

DRUGS (4)
  1. PEG-INTERFERON ALFA 2A (RO 25-8310) [Suspect]
     Dosage: FORM = INJECTION
     Route: 058
     Dates: start: 20050221, end: 20051111
  2. RIBAVIRIN [Suspect]
     Route: 048
     Dates: start: 20050221, end: 20051111
  3. IRBESARTAN AND HYDROCHLOROTHIAZIDE [Concomitant]
     Dosage: TOTAL DAILY DOSE = 300/125, NO UNITS PROVIDED
     Dates: start: 20041015
  4. NATRILIX [Concomitant]
     Dates: start: 20041015

REACTIONS (1)
  - TRANSIENT ISCHAEMIC ATTACK [None]
